FAERS Safety Report 25255894 (Version 1)
Quarter: 2025Q2

REPORT INFORMATION
  Report Type: Spontaneous
  Country: US (occurrence: US)
  Receive Date: 20250430
  Receipt Date: 20250430
  Transmission Date: 20250716
  Serious: Yes (Hospitalization)
  Sender: PFIZER
  Company Number: US-PFIZER INC-202500089736

PATIENT
  Age: 71 Year
  Sex: Female

DRUGS (1)
  1. SPIRONOLACTONE [Suspect]
     Active Substance: SPIRONOLACTONE

REACTIONS (5)
  - Fluid retention [Unknown]
  - Drug hypersensitivity [Unknown]
  - Contusion [Unknown]
  - Pruritus [Unknown]
  - Nausea [Unknown]
